FAERS Safety Report 23194408 (Version 4)
Quarter: 2024Q1

REPORT INFORMATION
  Report Type: Report from Study
  Country: CH (occurrence: CH)
  Receive Date: 20231117
  Receipt Date: 20240122
  Transmission Date: 20240410
  Serious: Yes (Hospitalization)
  Sender: FDA-Public Use
  Company Number: CH-BoehringerIngelheim-2019-BI-114287

PATIENT
  Age: 73 Year
  Sex: Male
  Weight: 92 kg

DRUGS (1)
  1. OFEV [Suspect]
     Active Substance: NINTEDANIB
     Indication: Idiopathic pulmonary fibrosis
     Route: 048
     Dates: start: 20191112, end: 20231227

REACTIONS (31)
  - Hydrocele operation [Recovered/Resolved]
  - Contusion [Recovering/Resolving]
  - Concussion [Recovering/Resolving]
  - Contusion [Recovering/Resolving]
  - Road traffic accident [Recovered/Resolved]
  - Diarrhoea [Recovered/Resolved]
  - Decreased appetite [Not Recovered/Not Resolved]
  - Dyspnoea [Unknown]
  - Weight decreased [Not Recovered/Not Resolved]
  - Decreased appetite [Not Recovered/Not Resolved]
  - Cough [Not Recovered/Not Resolved]
  - Rib fracture [Recovered/Resolved]
  - Clavicle fracture [Recovered/Resolved]
  - Mobility decreased [Recovering/Resolving]
  - Pneumonia [Recovered/Resolved]
  - Abdominal pain [Recovering/Resolving]
  - Weight decreased [Recovered/Resolved]
  - Weight decreased [Recovered/Resolved]
  - Diarrhoea [Recovered/Resolved]
  - Cystitis [Recovered/Resolved]
  - Diarrhoea [Not Recovered/Not Resolved]
  - Decreased appetite [Recovered/Resolved]
  - Aphasia [Recovered/Resolved]
  - Concussion [Recovered/Resolved]
  - COVID-19 [Recovered/Resolved]
  - Dyspnoea [Not Recovered/Not Resolved]
  - Contusion [Recovered/Resolved]
  - Cough [Not Recovered/Not Resolved]
  - Decreased appetite [Recovering/Resolving]
  - Dental implantation [Recovered/Resolved]
  - Influenza [Recovered/Resolved]

NARRATIVE: CASE EVENT DATE: 20191112
